FAERS Safety Report 21148559 (Version 2)
Quarter: 2022Q3

REPORT INFORMATION
  Report Type: Report from Study
  Country: US (occurrence: US)
  Receive Date: 20220729
  Receipt Date: 20220811
  Transmission Date: 20221027
  Serious: Yes (Disabling)
  Sender: FDA-Public Use
  Company Number: US-BRISTOL-MYERS SQUIBB COMPANY-2022-080444

PATIENT
  Age: 50 Year
  Sex: Female
  Weight: 83.461 kg

DRUGS (8)
  1. ORENCIA [Suspect]
     Active Substance: ABATACEPT
     Indication: Rheumatoid arthritis
     Route: 058
     Dates: start: 20220705
  2. ORENCIA [Suspect]
     Active Substance: ABATACEPT
     Dosage: DOSE : 5;     FREQ : ONCE A WEEK ON TUESDAYS
     Route: 058
     Dates: start: 20220705
  3. CELEBREX [Concomitant]
     Active Substance: CELECOXIB
     Indication: Product used for unknown indication
  4. CHLORTHALIDONE [Concomitant]
     Active Substance: CHLORTHALIDONE
     Indication: Product used for unknown indication
  5. TIZANIDINE HYDROCHLORIDE [Concomitant]
     Active Substance: TIZANIDINE HYDROCHLORIDE
     Indication: Product used for unknown indication
  6. OMEPRAZOLE [Concomitant]
     Active Substance: OMEPRAZOLE
     Indication: Product used for unknown indication
  7. VITAMIN D3 [Concomitant]
     Active Substance: CHOLECALCIFEROL
     Indication: Product used for unknown indication
  8. SEASONIQUE [Concomitant]
     Active Substance: ETHINYL ESTRADIOL\LEVONORGESTREL
     Indication: Product used for unknown indication

REACTIONS (12)
  - Joint swelling [Unknown]
  - Hypertension [Unknown]
  - Back pain [Unknown]
  - Rheumatoid arthritis [Unknown]
  - Inflammation [Unknown]
  - Hypoaesthesia [Unknown]
  - Paraesthesia [Unknown]
  - Feeling abnormal [Unknown]
  - Fatigue [Unknown]
  - Headache [Unknown]
  - Musculoskeletal stiffness [Unknown]
  - Drug ineffective [Unknown]

NARRATIVE: CASE EVENT DATE: 20220711
